FAERS Safety Report 4304020-7 (Version None)
Quarter: 2004Q1

REPORT INFORMATION
  Report Type: 
  Country: None (occurrence: None)
  Receive Date: 20040223
  Receipt Date: 20031105
  Transmission Date: 20041129
  Serious: No
  Sender: FDA-Public Use
  Company Number: PHEH2003US10256

PATIENT
  Sex: Female

DRUGS (3)
  1. ZELNORM [Suspect]
     Indication: IRRITABLE BOWEL SYNDROME
  2. 5-HYDROXYTRYPTOPHAN [Concomitant]
  3. CORAL CALCIUM [Concomitant]

REACTIONS (2)
  - ARTHRALGIA [None]
  - CONDITION AGGRAVATED [None]
